FAERS Safety Report 5053628-2 (Version None)
Quarter: 2006Q3

REPORT INFORMATION
  Report Type: 
  Country: None (occurrence: None)
  Receive Date: 20060718
  Receipt Date: 20060622
  Transmission Date: 20061208
  Serious: Yes (Hospitalization)
  Sender: FDA-Public Use
  Company Number: US-AVENTIS-200615425US

PATIENT
  Sex: Female

DRUGS (1)
  1. KETEK [Suspect]
     Indication: PHARYNGITIS
     Dosage: DOSE: UNK
     Dates: start: 20060605, end: 20060607

REACTIONS (4)
  - ABDOMINAL PAIN [None]
  - HEPATITIS [None]
  - LIVER FUNCTION TEST ABNORMAL [None]
  - PANCREATIC ENZYMES INCREASED [None]
